FAERS Safety Report 14057784 (Version 1)
Quarter: 2017Q4

REPORT INFORMATION
  Report Type: Report from Study
  Country: US (occurrence: US)
  Receive Date: 20171006
  Receipt Date: 20171006
  Transmission Date: 20180321
  Serious: Yes (Other)
  Sender: FDA-Public Use
  Company Number: US-GLAXOSMITHKLINE-US2017153117

PATIENT
  Sex: Female

DRUGS (5)
  1. WARFARIN [Concomitant]
     Active Substance: WARFARIN
     Dosage: UNK
     Route: 065
  2. VELETRI [Suspect]
     Active Substance: EPOPROSTENOL
     Indication: PRODUCT USED FOR UNKNOWN INDICATION
     Dosage: UNK
     Route: 065
  3. COUMADIN [Concomitant]
     Active Substance: WARFARIN SODIUM
     Dosage: UNK
  4. AMBRISENTAN [Suspect]
     Active Substance: AMBRISENTAN
     Indication: PRODUCT USED FOR UNKNOWN INDICATION
     Dosage: 10 MG, QD
     Route: 065
     Dates: start: 20090223
  5. FLOLAN [Concomitant]
     Active Substance: EPOPROSTENOL SODIUM
     Dosage: UNK

REACTIONS (12)
  - Oxygen saturation decreased [Not Recovered/Not Resolved]
  - Palpitations [Not Recovered/Not Resolved]
  - Dizziness [Not Recovered/Not Resolved]
  - Hypoaesthesia [Not Recovered/Not Resolved]
  - Headache [Not Recovered/Not Resolved]
  - Pain in extremity [Not Recovered/Not Resolved]
  - Dyspnoea [Unknown]
  - Malaise [Unknown]
  - Pain in jaw [Not Recovered/Not Resolved]
  - Chest discomfort [Not Recovered/Not Resolved]
  - Dyspnoea exertional [Not Recovered/Not Resolved]
  - Paraesthesia [Not Recovered/Not Resolved]
